FAERS Safety Report 22147960 (Version 3)
Quarter: 2023Q2

REPORT INFORMATION
  Report Type: Spontaneous
  Country: DE (occurrence: DE)
  Receive Date: 20230328
  Receipt Date: 20230406
  Transmission Date: 20230721
  Serious: Yes (Death)
  Sender: FDA-Public Use
  Company Number: DE-DSJP-DSE-2023-111795

PATIENT
  Age: 95 Year
  Sex: Female

DRUGS (11)
  1. EDOXABAN TOSYLATE [Suspect]
     Active Substance: EDOXABAN TOSYLATE
     Indication: Atrial fibrillation
     Dosage: 30 MG, QD
     Route: 048
     Dates: start: 2017, end: 20230316
  2. EDOXABAN TOSYLATE [Suspect]
     Active Substance: EDOXABAN TOSYLATE
     Indication: Atrial fibrillation
  3. RAMIPRIL [Concomitant]
     Active Substance: RAMIPRIL
     Indication: Hypertension
     Dosage: UNK UNK, BID ((1-0-?))
     Route: 048
     Dates: end: 20230316
  4. PANTOPRAZOLE [Concomitant]
     Active Substance: PANTOPRAZOLE
     Indication: Gastrooesophageal reflux disease
     Dosage: 40 MG, QD (1-0-0)
     Route: 048
     Dates: end: 20230316
  5. TORSEMIDE [Concomitant]
     Active Substance: TORSEMIDE
     Indication: Hypertension
     Dosage: UNK UNK, QD (?-0-0)
     Route: 048
     Dates: end: 20230316
  6. TROSPIUM CHLORIDE [Concomitant]
     Active Substance: TROSPIUM CHLORIDE
     Indication: Nocturia
     Dosage: 30 MG, QD (0-0-1)
     Route: 048
     Dates: end: 20230316
  7. TILIDINE [Concomitant]
     Active Substance: TILIDINE
     Indication: Pain
     Dosage: UNK UNK, QD (100/8 MG PROLONGED-RELEASE) (0-0-1)
     Route: 048
     Dates: end: 20230316
  8. TILIDINE [Concomitant]
     Active Substance: TILIDINE
     Dosage: UNK UNK, AS NEEDED (50/4 MG DROPS) (5 DROPS UP TO 3X/DAY ORALLY)
     Route: 048
     Dates: end: 20230316
  9. NOVALGIN (METAMIZOLE SODIUM) [Concomitant]
     Active Substance: METAMIZOLE SODIUM
     Indication: Pain
     Dosage: 500 MG, TID (1-1-1)
     Route: 048
     Dates: end: 20230316
  10. NEURO STADA [Concomitant]
     Indication: Paraesthesia
     Dosage: 1 DF, BID (1-0-1)
     Route: 048
     Dates: end: 20230316
  11. LEVOTHYROXINE SODIUM\POTASSIUM IODIDE [Concomitant]
     Active Substance: LEVOTHYROXINE SODIUM\POTASSIUM IODIDE
     Indication: Goitre
     Dosage: 100 UG, QD (1-0-0)
     Route: 048
     Dates: end: 20230316

REACTIONS (1)
  - Cerebrovascular accident [Fatal]

NARRATIVE: CASE EVENT DATE: 20230316
